FAERS Safety Report 25204518 (Version 2)
Quarter: 2025Q2

REPORT INFORMATION
  Report Type: Report from Study
  Country: US (occurrence: US)
  Receive Date: 20250416
  Receipt Date: 20250624
  Transmission Date: 20250717
  Serious: Yes (Hospitalization)
  Sender: ACADIA PHARMACEUTICALS
  Company Number: US-ACADIA PHARMACEUTICALS INC.-ACA-2025-PIM-004160

PATIENT
  Age: 76 Year
  Sex: Male

DRUGS (36)
  1. NUPLAZID [Suspect]
     Active Substance: PIMAVANSERIN TARTRATE
     Indication: Parkinson^s disease
     Dosage: 34 MILLIGRAM, QD
     Route: 048
     Dates: start: 20250305
  2. ADULT MULTIVITAMIN [Concomitant]
  3. VITAMIN B-1 [THIAMINE HYDROCHLORIDE] [Concomitant]
  4. VITAMIN K2 + D3 [COLECALCIFEROL;MENAQUINONE] [Concomitant]
  5. PROBIOTIC 4 [Concomitant]
  6. ADLARITY [Concomitant]
     Active Substance: DONEPEZIL HYDROCHLORIDE
  7. BUDESONIDE [Concomitant]
     Active Substance: BUDESONIDE
  8. AMOXICILLIN [Concomitant]
     Active Substance: AMOXICILLIN
  9. CEPHALEXIN [Concomitant]
     Active Substance: CEPHALEXIN
  10. CIPROFLOXACIN [Concomitant]
     Active Substance: CIPROFLOXACIN
  11. COMBIVENT [Concomitant]
     Active Substance: ALBUTEROL SULFATE\IPRATROPIUM BROMIDE
  12. ATROPINE\DIPHENOXYLATE [Concomitant]
     Active Substance: ATROPINE\DIPHENOXYLATE
  13. DONEPEZIL [Concomitant]
     Active Substance: DONEPEZIL
  14. DOXEPIN [Concomitant]
     Active Substance: DOXEPIN
  15. DOXYCYCLINE [Concomitant]
     Active Substance: DOXYCYCLINE
  16. ERYTHROMYCIN [Concomitant]
     Active Substance: ERYTHROMYCIN
  17. LUNESTA [Concomitant]
     Active Substance: ESZOPICLONE
  18. FAMOTIDINE [Concomitant]
     Active Substance: FAMOTIDINE
  19. IBUPROFEN [Concomitant]
     Active Substance: IBUPROFEN
  20. IPRATROPIUM [Concomitant]
     Active Substance: IPRATROPIUM
  21. LORAZEPAM [Concomitant]
     Active Substance: LORAZEPAM
  22. LOSARTAN [Concomitant]
     Active Substance: LOSARTAN
  23. METHYLPREDNISOLONE ACETATE [Concomitant]
     Active Substance: METHYLPREDNISOLONE ACETATE
  24. MIDODRINE [Concomitant]
     Active Substance: MIDODRINE
  25. MUPIROCIN [Concomitant]
     Active Substance: MUPIROCIN
  26. POTASSIUM [Concomitant]
     Active Substance: POTASSIUM
  27. PRAZOSIN [Concomitant]
     Active Substance: PRAZOSIN
  28. PREDNISOLONE [Concomitant]
     Active Substance: PREDNISOLONE
  29. QUETIAPINE [Concomitant]
     Active Substance: QUETIAPINE
  30. RYTARY [Concomitant]
     Active Substance: CARBIDOPA\LEVODOPA
  31. BACTRIM [Concomitant]
     Active Substance: SULFAMETHOXAZOLE\TRIMETHOPRIM
  32. TETRACYCLINE [Concomitant]
     Active Substance: TETRACYCLINE
  33. XDEMVY [Concomitant]
     Active Substance: LOTILANER
  34. ZENPEP [Concomitant]
     Active Substance: PANCRELIPASE AMYLASE\PANCRELIPASE LIPASE\PANCRELIPASE PROTEASE
  35. NITROFURANTOIN [Concomitant]
     Active Substance: NITROFURANTOIN
  36. ASPIRIN [Concomitant]
     Active Substance: ASPIRIN

REACTIONS (11)
  - Urinary tract infection [Not Recovered/Not Resolved]
  - Pyrexia [Not Recovered/Not Resolved]
  - Anaemia [Not Recovered/Not Resolved]
  - Blood pressure increased [Not Recovered/Not Resolved]
  - Post-traumatic stress disorder [Not Recovered/Not Resolved]
  - Confusional state [Not Recovered/Not Resolved]
  - Weight decreased [Not Recovered/Not Resolved]
  - Hypotension [Not Recovered/Not Resolved]
  - Condition aggravated [Recovering/Resolving]
  - Constipation [Not Recovered/Not Resolved]
  - Therapy interrupted [Not Recovered/Not Resolved]

NARRATIVE: CASE EVENT DATE: 20250403
